FAERS Safety Report 16781413 (Version 6)
Quarter: 2022Q4

REPORT INFORMATION
  Report Type: Spontaneous
  Country: US (occurrence: None)
  Receive Date: 20190906
  Receipt Date: 20221222
  Transmission Date: 20230112
  Serious: Yes (Death, Hospitalization, Other)
  Sender: FDA-Public Use
  Company Number: 2019SF26407

PATIENT
  Age: 20112 Day
  Sex: Male
  Weight: 90.7 kg

DRUGS (62)
  1. NEXIUM [Suspect]
     Active Substance: ESOMEPRAZOLE MAGNESIUM
     Indication: Gastrooesophageal reflux disease
     Route: 048
     Dates: start: 200510, end: 201610
  2. NEXIUM [Suspect]
     Active Substance: ESOMEPRAZOLE MAGNESIUM
     Indication: Gastrooesophageal reflux disease
     Route: 048
     Dates: start: 2011, end: 2015
  3. NEXIUM [Suspect]
     Active Substance: ESOMEPRAZOLE MAGNESIUM
     Indication: Gastrooesophageal reflux disease
     Route: 048
     Dates: start: 20110103
  4. PRILOSEC [Suspect]
     Active Substance: OMEPRAZOLE MAGNESIUM
     Indication: Gastrooesophageal reflux disease
     Route: 048
     Dates: start: 200510, end: 201610
  5. PRILOSEC [Suspect]
     Active Substance: OMEPRAZOLE MAGNESIUM
     Indication: Gastrooesophageal reflux disease
     Route: 048
     Dates: start: 2010, end: 2011
  6. PREVACID [Suspect]
     Active Substance: LANSOPRAZOLE
     Indication: Gastrooesophageal reflux disease
     Route: 065
     Dates: start: 200510, end: 201610
  7. PREVACID [Suspect]
     Active Substance: LANSOPRAZOLE
     Indication: Gastrooesophageal reflux disease
     Route: 065
     Dates: start: 2005, end: 2006
  8. PREVACID [Suspect]
     Active Substance: LANSOPRAZOLE
     Indication: Gastrooesophageal reflux disease
     Route: 065
     Dates: start: 20051019
  9. SIMVASTATIN [Concomitant]
     Active Substance: SIMVASTATIN
     Indication: Hypertension
     Dates: start: 2014
  10. LOW-DOSE ASPIRIN [Concomitant]
     Active Substance: ASPIRIN
     Indication: Cardiac disorder
     Dates: start: 2014
  11. OXYCODONE [Concomitant]
     Active Substance: OXYCODONE
  12. VALCYTE [Concomitant]
     Active Substance: VALGANCICLOVIR HYDROCHLORIDE
  13. TEMAZEPAM [Concomitant]
     Active Substance: TEMAZEPAM
  14. NOVOLOG [Concomitant]
     Active Substance: INSULIN ASPART
  15. NIFEDIAC CC [Concomitant]
     Active Substance: NIFEDIPINE
  16. HYDROCORTISONE [Concomitant]
     Active Substance: HYDROCORTISONE
     Indication: Immunosuppression
     Dates: start: 2014
  17. NITROGLYCERIN [Concomitant]
     Active Substance: NITROGLYCERIN
  18. LYRICA [Concomitant]
     Active Substance: PREGABALIN
  19. LANTUS [Concomitant]
     Active Substance: INSULIN GLARGINE
  20. HYDROXYZINE [Concomitant]
     Active Substance: HYDROXYZINE HYDROCHLORIDE
  21. CYMBALTA [Concomitant]
     Active Substance: DULOXETINE HYDROCHLORIDE
  22. GABAPENTIN [Concomitant]
     Active Substance: GABAPENTIN
  23. ALPRAZOLAM [Concomitant]
     Active Substance: ALPRAZOLAM
  24. LISINOPRIL [Concomitant]
     Active Substance: LISINOPRIL
  25. LIPITOR [Concomitant]
     Active Substance: ATORVASTATIN CALCIUM
  26. IMDUR [Concomitant]
     Active Substance: ISOSORBIDE MONONITRATE
  27. PROGRAF [Concomitant]
     Active Substance: TACROLIMUS
  28. HUMALOG [Concomitant]
     Active Substance: INSULIN LISPRO
  29. DOCUSATE SODIUM [Concomitant]
     Active Substance: DOCUSATE SODIUM
  30. MYFORTIC [Concomitant]
     Active Substance: MYCOPHENOLATE SODIUM
  31. METOPROLOL [Concomitant]
     Active Substance: METOPROLOL
     Indication: Hypertension
     Dates: start: 2012, end: 2014
  32. FLUDROCORTISONE [Concomitant]
     Active Substance: FLUDROCORTISONE
  33. ADVAIR HFA [Concomitant]
     Active Substance: FLUTICASONE PROPIONATE\SALMETEROL XINAFOATE
  34. LIDOCAINE [Concomitant]
     Active Substance: LIDOCAINE
  35. PANTOPRAZOLE [Concomitant]
     Active Substance: PANTOPRAZOLE
  36. TOPIRAMATE [Concomitant]
     Active Substance: TOPIRAMATE
  37. AGGRENOX [Concomitant]
     Active Substance: ASPIRIN\DIPYRIDAMOLE
  38. METOPROLOL TARTRATE [Concomitant]
     Active Substance: METOPROLOL TARTRATE
  39. ALBUTEROL [Concomitant]
     Active Substance: ALBUTEROL
  40. MECLIZINE [Concomitant]
     Active Substance: MECLIZINE HYDROCHLORIDE
  41. MULTIPLE VITAMIN- MINERALS [Concomitant]
  42. PENICILLIN [Concomitant]
     Active Substance: PENICILLIN
  43. NIASPAN [Concomitant]
     Active Substance: NIACIN
  44. ACETAMINOPHEN\OXYCODONE HYDROCHLORIDE [Concomitant]
     Active Substance: ACETAMINOPHEN\OXYCODONE HYDROCHLORIDE
  45. PRAVACHOL [Concomitant]
     Active Substance: PRAVASTATIN SODIUM
  46. ALTACE [Concomitant]
     Active Substance: RAMIPRIL
  47. HYDROMORPHONE [Concomitant]
     Active Substance: HYDROMORPHONE
  48. TRICOR [Concomitant]
     Active Substance: FENOFIBRATE
  49. CYCLOBENZAPRINE [Concomitant]
     Active Substance: CYCLOBENZAPRINE
  50. TRAZODONE [Concomitant]
     Active Substance: TRAZODONE HYDROCHLORIDE
  51. METHOCARBAMOL [Concomitant]
     Active Substance: METHOCARBAMOL
  52. AMLODIPINE BESYLATE [Concomitant]
     Active Substance: AMLODIPINE BESYLATE
  53. VITAMIN D [Concomitant]
     Active Substance: VITAMIN D NOS
  54. SULFAMETHOXAZOLE [Concomitant]
     Active Substance: SULFAMETHOXAZOLE
  55. ISOSORBIDE MONONITRATE [Concomitant]
     Active Substance: ISOSORBIDE MONONITRATE
  56. CEPHALEXIN [Concomitant]
     Active Substance: CEPHALEXIN
  57. CLOPIDOGREL [Concomitant]
     Active Substance: CLOPIDOGREL BISULFATE
  58. BUSPIRPONE [Concomitant]
  59. TIMOLOL [Concomitant]
     Active Substance: TIMOLOL
  60. APRESOLINE HYDROCHLORIDE [Concomitant]
     Active Substance: HYDRALAZINE HYDROCHLORIDE
     Dates: start: 20191111
  61. AVAPRO [Concomitant]
     Active Substance: IRBESARTAN
     Dates: start: 20191111
  62. ROXICET [Concomitant]
     Active Substance: ACETAMINOPHEN\OXYCODONE HYDROCHLORIDE
     Dates: start: 20191111

REACTIONS (10)
  - Sepsis [Fatal]
  - Wound [Fatal]
  - Cerebrovascular accident [Fatal]
  - Acute kidney injury [Unknown]
  - Chronic kidney disease [Unknown]
  - End stage renal disease [Unknown]
  - Hypoparathyroidism secondary [Unknown]
  - Nephrogenic anaemia [Unknown]
  - Renal failure [Unknown]
  - Renal tubular necrosis [Unknown]

NARRATIVE: CASE EVENT DATE: 20090922
